FAERS Safety Report 8836735 (Version 2)
Quarter: 2015Q3

REPORT INFORMATION
  Report Type: Report from Study
  Country: US (occurrence: US)
  Receive Date: 20121012
  Receipt Date: 20150803
  Transmission Date: 20151125
  Serious: Yes (Hospitalization)
  Sender: FDA-Public Use
  Company Number: US-ROCHE-1140474

PATIENT
  Age: 15 Year
  Sex: Male
  Weight: 36.1 kg

DRUGS (6)
  1. NUTROPIN AQ [Suspect]
     Active Substance: SOMATROPIN
     Indication: GROWTH HORMONE DEFICIENCY
     Route: 058
  2. ALBUTEROL. [Concomitant]
     Active Substance: ALBUTEROL
  3. NUTROPIN AQ [Suspect]
     Active Substance: SOMATROPIN
     Route: 058
  4. NAFCILLIN SODIUM. [Concomitant]
     Active Substance: NAFCILLIN SODIUM
  5. AMINOSYN [Concomitant]
     Active Substance: ALANINE\ARGININE\GLYCINE\HISTIDINE\ISOLEUCINE\LEUCINE\LYSINE ACETATE\METHIONINE\PHENYLALANINE\PROLINE\SERINE\THREONINE\TRYPTOPHAN\TYROSINE\VALINE
  6. NUTROPIN AQ [Suspect]
     Active Substance: SOMATROPIN
     Indication: CYSTIC FIBROSIS
     Dosage: 0.35 CC
     Route: 058

REACTIONS (5)
  - Pneumonia [Unknown]
  - Flushing [Unknown]
  - Cough [Unknown]
  - Bronchial secretion retention [Unknown]
  - Bronchiectasis [Unknown]

NARRATIVE: CASE EVENT DATE: 200010
